FAERS Safety Report 13039123 (Version 1)
Quarter: 2016Q4

REPORT INFORMATION
  Report Type: Spontaneous
  Country: US (occurrence: US)
  Receive Date: 20161216
  Receipt Date: 20161216
  Transmission Date: 20170207
  Serious: Yes (Other)
  Sender: FDA-Public Use
  Company Number: None

PATIENT
  Age: 44 Year
  Sex: Female
  Weight: 81 kg

DRUGS (9)
  1. WERA [Concomitant]
     Active Substance: ETHINYL ESTRADIOL\NORETHINDRONE
  2. NAPROXEN. [Concomitant]
     Active Substance: NAPROXEN
  3. VOLTAREN [Concomitant]
     Active Substance: DICLOFENAC SODIUM
  4. XANAX [Concomitant]
     Active Substance: ALPRAZOLAM
  5. NORCO [Concomitant]
     Active Substance: ACETAMINOPHEN\HYDROCODONE BITARTRATE
  6. PLAQUENIL [Concomitant]
     Active Substance: HYDROXYCHLOROQUINE SULFATE
  7. HUMIRA [Suspect]
     Active Substance: ADALIMUMAB
     Indication: RHEUMATOID ARTHRITIS
     Route: 058
     Dates: start: 20160913, end: 20161216
  8. PREDNISONE. [Concomitant]
     Active Substance: PREDNISONE
  9. ZYRTEC [Concomitant]
     Active Substance: CETIRIZINE HYDROCHLORIDE

REACTIONS (3)
  - Injection site reaction [None]
  - Injection site swelling [None]
  - Alopecia [None]

NARRATIVE: CASE EVENT DATE: 20161101
